FAERS Safety Report 7381710-3 (Version None)
Quarter: 2011Q1

REPORT INFORMATION
  Report Type: 
  Country: None (occurrence: None)
  Receive Date: 20110329
  Receipt Date: 20101021
  Transmission Date: 20110831
  Serious: Yes (Other)
  Sender: FDA-Public Use
  Company Number: US-BAYER-201038204NA

PATIENT
  Sex: Female
  Weight: 81.633 kg

DRUGS (6)
  1. ADVIL [IBUPROFEN] [Concomitant]
     Dosage: UNK UNK, PRN
  2. YAZ [Suspect]
     Indication: PRODUCT USED FOR UNKNOWN INDICATION
     Route: 048
     Dates: start: 20080101, end: 20090615
  3. YASMIN [Suspect]
     Indication: PREMENSTRUAL SYNDROME
     Route: 048
     Dates: start: 20080101, end: 20090615
  4. YASMIN [Suspect]
     Indication: MENSTRUATION IRREGULAR
  5. CYCLOBENZAPRINE [Concomitant]
  6. NAPROXEN [Concomitant]
     Dosage: UNK UNK, PRN

REACTIONS (4)
  - OEDEMA PERIPHERAL [None]
  - CAPILLARY FRAGILITY [None]
  - COAGULOPATHY [None]
  - DEEP VEIN THROMBOSIS [None]
